FAERS Safety Report 4428025-0 (Version None)
Quarter: 2004Q3

REPORT INFORMATION
  Report Type: 
  Country: None (occurrence: None)
  Receive Date: 20040813
  Receipt Date: 20040728
  Transmission Date: 20050211
  Serious: Yes (Hospitalization)
  Sender: FDA-Public Use
  Company Number: A03200402514

PATIENT
  Age: 43 Year
  Sex: Female

DRUGS (3)
  1. DEMEROL [Suspect]
     Indication: PAIN
     Dosage: 100 MG - ORAL
     Route: 048
     Dates: start: 20040602, end: 20040609
  2. VALIUM [Suspect]
     Indication: MUSCLE SPASMS
     Dosage: 10 MG - ORAL
     Route: 048
     Dates: start: 20040602
  3. DURAGESIC [Suspect]
     Indication: PAIN
     Dosage: TOPICAL
     Route: 061
     Dates: start: 20040602

REACTIONS (3)
  - AMNESIA [None]
  - IMPAIRED DRIVING ABILITY [None]
  - LOSS OF CONSCIOUSNESS [None]
